FAERS Safety Report 15417978 (Version 1)
Quarter: 2018Q3

REPORT INFORMATION
  Report Type: Spontaneous
  Country: CN (occurrence: CN)
  Receive Date: 20180924
  Receipt Date: 20180924
  Transmission Date: 20181010
  Serious: Yes (Hospitalization, Other)
  Sender: FDA-Public Use
  Company Number: CN-ASTELLAS-2018US041454

PATIENT
  Age: 46 Year
  Sex: Male

DRUGS (16)
  1. GANCICLOVIR. [Concomitant]
     Active Substance: GANCICLOVIR
     Indication: VIRAL INFECTION
     Dosage: 0.45 G, ONCE DAILY
     Route: 065
  2. ESOMEPRAZOLE [Concomitant]
     Active Substance: ESOMEPRAZOLE
     Indication: GASTRIC PH INCREASED
     Route: 065
  3. TACROLIMUS. [Suspect]
     Active Substance: TACROLIMUS
     Indication: HEART TRANSPLANT
     Route: 065
  4. METHYLPREDNISOLONE. [Concomitant]
     Active Substance: METHYLPREDNISOLONE
     Indication: HEART TRANSPLANT
     Route: 065
  5. VFEND [Interacting]
     Active Substance: VORICONAZOLE
     Route: 065
  6. GANCICLOVIR. [Concomitant]
     Active Substance: GANCICLOVIR
     Dosage: 0.3 G, ONCE DAILY
     Route: 065
  7. AMBROXOL HYDROCHLORIDE [Concomitant]
     Active Substance: AMBROXOL HYDROCHLORIDE
     Indication: PRODUCTIVE COUGH
     Route: 065
  8. TACROLIMUS. [Interacting]
     Active Substance: TACROLIMUS
     Route: 065
     Dates: start: 20170407
  9. MYFORTIC [Concomitant]
     Active Substance: MYCOPHENOLATE SODIUM
     Indication: HEART TRANSPLANT
     Route: 065
  10. TACROLIMUS. [Interacting]
     Active Substance: TACROLIMUS
     Dosage: 0.5 MG, EVERY 12 HOURS
     Route: 065
  11. IMIPENEM/CILASTATINE [Concomitant]
     Active Substance: CILASTATIN SODIUM\IMIPENEM
     Indication: BACTERIAL INFECTION
     Dosage: 0.5 G, EVERY 8 HOURS
     Route: 065
  12. ALPROSTADIL. [Concomitant]
     Active Substance: ALPROSTADIL
     Indication: VASODILATATION
     Route: 040
  13. VFEND [Interacting]
     Active Substance: VORICONAZOLE
     Indication: FUNGAL INFECTION
     Route: 065
  14. TACROLIMUS. [Interacting]
     Active Substance: TACROLIMUS
     Route: 065
     Dates: start: 20170401
  15. TACROLIMUS. [Interacting]
     Active Substance: TACROLIMUS
     Route: 065
     Dates: start: 20170404
  16. THYMOGLOBULINE [Concomitant]
     Active Substance: LAPINE T-LYMPHOCYTE IMMUNE GLOBULIN
     Indication: HEART TRANSPLANT
     Route: 065

REACTIONS (10)
  - Immunosuppressant drug level increased [Recovering/Resolving]
  - Oxygen saturation decreased [Recovering/Resolving]
  - Cardiac dysfunction [Recovering/Resolving]
  - Aortic valve incompetence [Recovering/Resolving]
  - Congestive cardiomyopathy [Recovering/Resolving]
  - Pericardial effusion [Recovering/Resolving]
  - Blood pressure increased [Recovering/Resolving]
  - Drug interaction [Unknown]
  - Cardiomegaly [Recovering/Resolving]
  - Acute kidney injury [Recovering/Resolving]

NARRATIVE: CASE EVENT DATE: 20170330
